FAERS Safety Report 10220297 (Version 1)
Quarter: 2014Q2

REPORT INFORMATION
  Report Type: Report from Study
  Country: TW (occurrence: TW)
  Receive Date: 20140606
  Receipt Date: 20140606
  Transmission Date: 20141212
  Serious: Yes (Death, Other)
  Sender: FDA-Public Use
  Company Number: TW-ROCHE-1409853

PATIENT
  Sex: 0

DRUGS (8)
  1. PEG-INTERFERON ALFA 2A [Suspect]
     Indication: CHRONIC HEPATITIS C
     Route: 058
  2. MYCOPHENOLATE MOFETIL [Suspect]
     Indication: PROPHYLAXIS AGAINST TRANSPLANT REJECTION
     Route: 065
  3. RIBAVIRIN [Suspect]
     Indication: CHRONIC HEPATITIS C
     Route: 048
  4. BASILIXIMAB [Suspect]
     Indication: PROPHYLAXIS AGAINST TRANSPLANT REJECTION
     Dosage: AT 6 HR. AFTER PORTAL VEIN REPERFUSION AND ON DAY 4 POST LT
     Route: 042
  5. METHYLPREDNISOLONE [Suspect]
     Indication: PROPHYLAXIS AGAINST TRANSPLANT REJECTION
     Route: 042
  6. METHYLPREDNISOLONE [Suspect]
     Dosage: TAPERED TO 5 MG DAILY.
     Route: 048
  7. METHYLPREDNISOLONE [Suspect]
     Dosage: TAPERED DOSE
     Route: 048
  8. TACROLIMUS [Suspect]
     Indication: PROPHYLAXIS AGAINST TRANSPLANT REJECTION
     Route: 065

REACTIONS (5)
  - Sepsis [Fatal]
  - Anaemia [Unknown]
  - Leukopenia [Unknown]
  - Bacteraemia [Unknown]
  - Pancytopenia [Unknown]
